FAERS Safety Report 6760991-0 (Version None)
Quarter: 2010Q2

REPORT INFORMATION
  Report Type: 
  Country: None (occurrence: None)
  Receive Date: 20100608
  Receipt Date: 20100602
  Transmission Date: 20101027
  Serious: Yes (Hospitalization)
  Sender: FDA-Public Use
  Company Number: A0862612A

PATIENT
  Age: 59 Year
  Sex: Male
  Weight: 120.5 kg

DRUGS (5)
  1. AVANDIA [Suspect]
     Route: 048
     Dates: start: 20000601
  2. GLUCOTROL [Concomitant]
  3. LOPRESSOR [Concomitant]
  4. RHYTHMOL [Concomitant]
  5. LOTENSIN [Concomitant]

REACTIONS (2)
  - ISCHAEMIC STROKE [None]
  - SPEECH DISORDER [None]
